FAERS Safety Report 24780644 (Version 2)
Quarter: 2025Q1

REPORT INFORMATION
  Report Type: Spontaneous
  Country: CN (occurrence: CN)
  Receive Date: 20241227
  Receipt Date: 20250113
  Transmission Date: 20250409
  Serious: Yes (Hospitalization, Other)
  Sender: BRISTOL-MYERS SQUIBB COMPANY
  Company Number: CN-BRISTOL-MYERS SQUIBB COMPANY-2024-195860

PATIENT
  Age: 54 Year
  Sex: Male

DRUGS (6)
  1. LENALIDOMIDE [Suspect]
     Active Substance: LENALIDOMIDE
     Indication: Angioimmunoblastic T-cell lymphoma
     Dates: start: 2016
  2. LENALIDOMIDE [Suspect]
     Active Substance: LENALIDOMIDE
     Dates: start: 2016
  3. LENALIDOMIDE [Suspect]
     Active Substance: LENALIDOMIDE
  4. LENALIDOMIDE [Suspect]
     Active Substance: LENALIDOMIDE
     Dates: start: 2016
  5. PREDNISONE [Concomitant]
     Active Substance: PREDNISONE
     Indication: Angioimmunoblastic T-cell lymphoma
  6. PREDNISONE [Concomitant]
     Active Substance: PREDNISONE
     Dates: start: 2016, end: 2016

REACTIONS (6)
  - Pneumocystis jirovecii pneumonia [Unknown]
  - Thrombocytopenia [Unknown]
  - Neutropenia [Unknown]
  - Off label use [Unknown]
  - COVID-19 pneumonia [Unknown]
  - Candida pneumonia [Unknown]

NARRATIVE: CASE EVENT DATE: 20220801
